FAERS Safety Report 6538175-0 (Version None)
Quarter: 2010Q1

REPORT INFORMATION
  Report Type: 
  Country: None (occurrence: None)
  Receive Date: 20100114
  Receipt Date: 20100112
  Transmission Date: 20100710
  Serious: Yes (Death)
  Sender: FDA-Public Use
  Company Number: PHHY2010BR01410

PATIENT
  Sex: Female

DRUGS (5)
  1. DIOVAN [Suspect]
     Dosage: 80 MG, UNK
  2. DIOVAN [Suspect]
     Dosage: 160 MG, UNK
     Dates: start: 20071002
  3. DIOVAN AMLO [Suspect]
     Dosage: 160/5 MG, UNK
     Dates: start: 20080328
  4. DIOVAN AMLO FIX [Suspect]
     Dosage: 160/5 MG, UNK
     Dates: start: 20081210
  5. EXELON [Suspect]
     Dosage: 2 MG, UNK
     Dates: start: 20071008

REACTIONS (1)
  - DEATH [None]
